FAERS Safety Report 20665079 (Version 3)
Quarter: 2022Q2

REPORT INFORMATION
  Report Type: Report from Study
  Country: RU (occurrence: RU)
  Receive Date: 20220401
  Receipt Date: 20220630
  Transmission Date: 20220721
  Serious: Yes (Other)
  Sender: FDA-Public Use
  Company Number: RU-JNJFOC-20220351356

PATIENT
  Age: 63 Year
  Sex: Male
  Weight: 93.6 kg

DRUGS (1)
  1. IBRUTINIB [Suspect]
     Active Substance: IBRUTINIB
     Indication: Neoplasm malignant
     Dosage: MOST RECENT DOSE: 22 MAR 2022
     Route: 048
     Dates: start: 20130507

REACTIONS (1)
  - Bowen^s disease [Recovered/Resolved]

NARRATIVE: CASE EVENT DATE: 20220228
